FAERS Safety Report 16269029 (Version 1)
Quarter: 2019Q2

REPORT INFORMATION
  Report Type: Spontaneous
  Country: GB (occurrence: GB)
  Receive Date: 20190503
  Receipt Date: 20190503
  Transmission Date: 20190711
  Serious: Yes (Hospitalization)
  Sender: FDA-Public Use
  Company Number: GB-TEVA-2019-GB-1045853

PATIENT
  Age: 81 Year
  Sex: Female

DRUGS (13)
  1. MIDODRINE [Concomitant]
     Active Substance: MIDODRINE
  2. BISOPROLOL [Concomitant]
     Active Substance: BISOPROLOL
  3. MONTELUKAST [Concomitant]
     Active Substance: MONTELUKAST SODIUM
  4. ADCAL-D3 [Concomitant]
     Active Substance: CALCIUM CARBONATE\CHOLECALCIFEROL
  5. CARBOCISTEINE [Concomitant]
     Active Substance: CARBOCYSTEINE
  6. CLOPIDOGREL [Suspect]
     Active Substance: CLOPIDOGREL BISULFATE
     Dates: end: 20181229
  7. LANSOPRAZOLE. [Concomitant]
     Active Substance: LANSOPRAZOLE
  8. FUROSEMIDE. [Concomitant]
     Active Substance: FUROSEMIDE
  9. ATORVASTATIN [Concomitant]
     Active Substance: ATORVASTATIN
  10. PREGABALIN. [Suspect]
     Active Substance: PREGABALIN
     Dosage: SUSPENDED AND THEN DOSE REDUCED ON RESTARTING
     Dates: end: 20181229
  11. APIXABAN [Suspect]
     Active Substance: APIXABAN
     Dosage: SUSPENDED FOR 2 WEEKS AND THEN RESTARTED AT 2.5MG TWICE A DAY
     Route: 048
     Dates: end: 20181229
  12. SERTRALINE [Suspect]
     Active Substance: SERTRALINE HYDROCHLORIDE
     Route: 048
     Dates: end: 20181229
  13. DOXYCYCLINE. [Concomitant]
     Active Substance: DOXYCYCLINE

REACTIONS (2)
  - Haematoma [Recovered/Resolved]
  - Fall [Recovered/Resolved]
